FAERS Safety Report 14978987 (Version 4)
Quarter: 2018Q4

REPORT INFORMATION
  Report Type: Spontaneous
  Country: US (occurrence: US)
  Receive Date: 20180606
  Receipt Date: 20181205
  Transmission Date: 20190204
  Serious: Yes (Hospitalization, Disabling, Other)
  Sender: FDA-Public Use
  Company Number: US-JNJFOC-20180603860

PATIENT
  Age: 34 Year
  Sex: Female

DRUGS (2)
  1. INVOKANA [Suspect]
     Active Substance: CANAGLIFLOZIN
     Indication: TYPE 2 DIABETES MELLITUS
     Route: 048
     Dates: start: 201501
  2. INVOKANA [Suspect]
     Active Substance: CANAGLIFLOZIN
     Indication: TYPE 2 DIABETES MELLITUS
     Dosage: VARYING DOSES OF 100 MG AND 300 MG DAILY
     Route: 048
     Dates: start: 20150202

REACTIONS (4)
  - Osteomyelitis [Unknown]
  - Leg amputation [Unknown]
  - Skin necrosis [Unknown]
  - Amputation [Unknown]

NARRATIVE: CASE EVENT DATE: 201503
